FAERS Safety Report 10214738 (Version 6)
Quarter: 2016Q1

REPORT INFORMATION
  Report Type: Report from Study
  Country: US (occurrence: US)
  Receive Date: 20140603
  Receipt Date: 20160301
  Transmission Date: 20160525
  Serious: Yes (Other)
  Sender: FDA-Public Use
  Company Number: US-SA-2014SA071035

PATIENT
  Age: 55 Year
  Sex: Male

DRUGS (6)
  1. LOTENSIN [Concomitant]
     Active Substance: BENAZEPRIL HYDROCHLORIDE
  2. AUBAGIO [Suspect]
     Active Substance: TERIFLUNOMIDE
     Indication: MULTIPLE SCLEROSIS
     Route: 048
     Dates: start: 20140210, end: 20140521
  3. GABAPENTIN. [Concomitant]
     Active Substance: GABAPENTIN
  4. XANAX [Concomitant]
     Active Substance: ALPRAZOLAM
  5. AUBAGIO [Suspect]
     Active Substance: TERIFLUNOMIDE
     Indication: MULTIPLE SCLEROSIS
     Route: 048
     Dates: end: 201601
  6. AMBIEN [Concomitant]
     Active Substance: ZOLPIDEM TARTRATE

REACTIONS (13)
  - Emotional disorder [Unknown]
  - Bladder disorder [Unknown]
  - Pain [Unknown]
  - Diarrhoea [Not Recovered/Not Resolved]
  - Drug ineffective [Unknown]
  - Gastrointestinal disorder [Unknown]
  - Slow speech [Unknown]
  - Walking aid user [Unknown]
  - Dysgraphia [Not Recovered/Not Resolved]
  - Bedridden [Unknown]
  - Hypokinesia [Not Recovered/Not Resolved]
  - Speech disorder [Unknown]
  - Anal incontinence [Unknown]

NARRATIVE: CASE EVENT DATE: 2014
